FAERS Safety Report 5351396-8 (Version None)
Quarter: 2007Q2

REPORT INFORMATION
  Report Type: 
  Country: None (occurrence: None)
  Receive Date: 20070608
  Receipt Date: 20070530
  Transmission Date: 20071010
  Serious: Yes (Other)
  Sender: FDA-Public Use
  Company Number: CA-GILEAD-2007-0011729

PATIENT
  Sex: Female

DRUGS (11)
  1. EMTRICITABINE [Suspect]
     Indication: HIV INFECTION
     Route: 048
     Dates: start: 20060620
  2. TENOFOVIR DISOPROXIL FUMARATE [Suspect]
     Indication: HIV INFECTION
     Route: 048
     Dates: start: 20040901
  3. DDI [Suspect]
     Indication: HIV INFECTION
     Route: 048
     Dates: start: 20060519, end: 20061112
  4. METFORMIN HCL [Concomitant]
     Indication: METABOLIC SYNDROME
     Route: 048
     Dates: start: 20000829, end: 20050109
  5. METFORMIN HCL [Concomitant]
     Route: 048
     Dates: start: 20050110
  6. AZT [Concomitant]
     Indication: HIV INFECTION
     Route: 048
     Dates: start: 19970627, end: 19971205
  7. AZT [Concomitant]
     Route: 048
     Dates: start: 20060620, end: 20061112
  8. ABACAVIR [Concomitant]
     Indication: HIV INFECTION
     Dates: start: 20010315, end: 20040901
  9. ABACAVIR [Concomitant]
     Route: 048
     Dates: start: 20060620, end: 20061112
  10. GLYBURIDE [Concomitant]
     Indication: METABOLIC SYNDROME
     Route: 048
     Dates: start: 20040604
  11. ROSIGLITAZONE [Concomitant]
     Indication: METABOLIC SYNDROME
     Route: 048
     Dates: start: 20050510

REACTIONS (2)
  - LACTIC ACIDOSIS [None]
  - RHABDOMYOLYSIS [None]
